FAERS Safety Report 7811041 (Version 4)
Quarter: 2013Q4

REPORT INFORMATION
  Report Type: Report from Study
  Country: ES (occurrence: ES)
  Receive Date: 20110214
  Receipt Date: 20131202
  Transmission Date: 20140711
  Serious: Yes (Hospitalization)
  Sender: FDA-Public Use
  Company Number: ES-MPIJNJ-2011-00227

PATIENT
  Sex: 0

DRUGS (4)
  1. VELCADE [Suspect]
     Indication: PLASMA CELL MYELOMA
     Dosage: 2.4 MG, CYCLIC
     Route: 042
     Dates: start: 20101228, end: 20110107
  2. VELCADE [Suspect]
     Dosage: 1.9 UNK, UNK
     Route: 042
     Dates: start: 20110118, end: 20110121
  3. VELCADE [Suspect]
     Dosage: 1.9 MG, UNK
     Route: 042
     Dates: end: 20110214
  4. DEXAMETHASONE [Suspect]
     Indication: PLASMA CELL MYELOMA
     Dosage: 40 MG, CYCLIC
     Route: 048
     Dates: start: 20101228, end: 20110210

REACTIONS (3)
  - H1N1 influenza [Recovered/Resolved]
  - Constipation [Recovered/Resolved]
  - Vertebroplasty [Recovered/Resolved]
